FAERS Safety Report 15688292 (Version 4)
Quarter: 2019Q2

REPORT INFORMATION
  Report Type: Spontaneous
  Country: KR (occurrence: KR)
  Receive Date: 20181205
  Receipt Date: 20190618
  Transmission Date: 20190711
  Serious: Yes (Hospitalization, Other)
  Sender: FDA-Public Use
  Company Number: KR-009507513-1811KOR012424

PATIENT
  Sex: Female

DRUGS (6)
  1. KEYTRUDA [Suspect]
     Active Substance: PEMBROLIZUMAB
     Dosage: EVERY 3 WEEKS (QUANTITY: 2, DAYS: 1)
     Dates: start: 20190510
  2. KEYTRUDA [Suspect]
     Active Substance: PEMBROLIZUMAB
     Dosage: EVERY 3 WEEKS (QUANTITY: 2, DAYS: 1)
     Dates: start: 20181210
  3. KEYTRUDA [Suspect]
     Active Substance: PEMBROLIZUMAB
     Dosage: EVERY 3 WEEKS (QUANTITY: 2, DAYS: 1)
     Dates: start: 20181115
  4. KEYTRUDA [Suspect]
     Active Substance: PEMBROLIZUMAB
     Dosage: EVERY 3 WEEKS
     Dates: start: 20181026, end: 20181026
  5. KEYTRUDA [Suspect]
     Active Substance: PEMBROLIZUMAB
     Dosage: EVERY 3 WEEKS (QUANTITY: 2, DAYS: 1)
     Dates: start: 20190419
  6. KEYTRUDA [Suspect]
     Active Substance: PEMBROLIZUMAB
     Indication: ENDOMETRIAL CANCER
     Dosage: EVERY 3 WEEKS
     Dates: start: 20181004, end: 20181004

REACTIONS (9)
  - Radiotherapy [Unknown]
  - Adverse event [Unknown]
  - Inappropriate schedule of product administration [Unknown]
  - Product use in unapproved indication [Unknown]
  - Transfusion [Unknown]
  - Transfusion [Unknown]
  - Inappropriate schedule of product administration [Unknown]
  - Oxygen therapy [Unknown]
  - Inappropriate schedule of product administration [Unknown]

NARRATIVE: CASE EVENT DATE: 201810
